FAERS Safety Report 6269566-3 (Version None)
Quarter: 2009Q3

REPORT INFORMATION
  Report Type: 
  Country: None (occurrence: None)
  Receive Date: 20090715
  Receipt Date: 20090710
  Transmission Date: 20100115
  Serious: Yes (Other)
  Sender: FDA-Public Use
  Company Number: US-MERCK-0907USA01354

PATIENT
  Age: 21 Year
  Sex: Male
  Weight: 84 kg

DRUGS (2)
  1. PROPECIA [Suspect]
     Indication: ALOPECIA
     Route: 048
  2. ROGAINE [Suspect]
     Indication: ALOPECIA
     Route: 061
     Dates: start: 20090612, end: 20090623

REACTIONS (2)
  - RASH ERYTHEMATOUS [None]
  - SWELLING [None]
